FAERS Safety Report 24751188 (Version 6)
Quarter: 2025Q4

REPORT INFORMATION
  Report Type: Report from Study
  Country: JP (occurrence: JP)
  Receive Date: 20241219
  Receipt Date: 20251014
  Transmission Date: 20260117
  Serious: Yes (Life-Threatening, Hospitalization, Other)
  Sender: GENMAB
  Company Number: JP-GENMAB-2023-02490AA

PATIENT
  Age: 67 Year
  Sex: Female
  Weight: 52.2 kg

DRUGS (8)
  1. EPKINLY [Suspect]
     Active Substance: EPCORITAMAB-BYSP
     Indication: Diffuse large B-cell lymphoma refractory
     Dosage: 0.16 MILLIGRAM, SINGLE
     Route: 058
     Dates: start: 20231204, end: 20231204
  2. EPKINLY [Suspect]
     Active Substance: EPCORITAMAB-BYSP
     Dosage: 0.16 MILLIGRAM, SINGLE, REPRIMING
     Route: 058
     Dates: start: 20231215, end: 20231215
  3. EPKINLY [Suspect]
     Active Substance: EPCORITAMAB-BYSP
     Dosage: 0.8 MILLIGRAM, SINGLE
     Route: 058
     Dates: start: 20231222, end: 20231222
  4. EPKINLY [Suspect]
     Active Substance: EPCORITAMAB-BYSP
     Dosage: 48 MILLIGRAM
     Route: 058
     Dates: start: 20231229
  5. CYCLOPHOSPHAMIDE [Suspect]
     Active Substance: CYCLOPHOSPHAMIDE
     Indication: Diffuse large B-cell lymphoma refractory
     Dosage: UNK, ONE COURSE OF COP THERAPY WAS PERFORMED TO DECREASED TUMOR VOLUME
     Dates: start: 20231128, end: 2023
  6. VINCRISTINE SULFATE [Suspect]
     Active Substance: VINCRISTINE SULFATE
     Indication: Diffuse large B-cell lymphoma refractory
     Dosage: UNK, ONE COURSE OF COP THERAPY WAS PERFORMED TO DECREASED TUMOR VOLUME
     Dates: start: 20231128, end: 2023
  7. PREDNISOLONE [Suspect]
     Active Substance: PREDNISOLONE
     Indication: Diffuse large B-cell lymphoma refractory
     Dosage: UNK, ONE COURSE OF COP THERAPY WAS PERFORMED TO DECREASED TUMOR VOLUME
     Dates: start: 20231128, end: 2023
  8. PREDNISOLONE [Suspect]
     Active Substance: PREDNISOLONE
     Indication: Prophylaxis
     Dosage: 100 MILLIGRAM, AT ADMINISTRATION OF EPKINLY
     Dates: start: 20231204, end: 202401

REACTIONS (7)
  - Cytokine release syndrome [Recovered/Resolved]
  - Cardiac failure [Recovering/Resolving]
  - Thrombocytopenia [Recovered/Resolved]
  - Cytokine release syndrome [Recovered/Resolved]
  - Leukopenia [Recovered/Resolved]
  - Neutrophil count decreased [Recovered/Resolved]
  - Anaemia [Recovered/Resolved]

NARRATIVE: CASE EVENT DATE: 20231204
